FAERS Safety Report 7987232-0 (Version None)
Quarter: 2011Q4

REPORT INFORMATION
  Report Type: 
  Country: None (occurrence: None)
  Receive Date: 20111216
  Receipt Date: 20111207
  Transmission Date: 20120403
  Serious: Yes (Other)
  Sender: FDA-Public Use
  Company Number: CA-JNJFOC-20111205621

PATIENT
  Sex: Female
  Weight: 77 kg

DRUGS (5)
  1. MS CONTIN [Concomitant]
     Dosage: DOSE UNSPECIFIED, TWICE DAILY AS NEEDED
  2. BENADRYL [Concomitant]
     Indication: PREMEDICATION
     Route: 042
  3. SOLU-CORTEF [Concomitant]
     Indication: PREMEDICATION
     Route: 042
  4. PERCOCET [Concomitant]
     Dosage: PERCOCET 1 TO 2 BY MOUTH EVERY 4 TO 6 HOURS AS NEEDED
  5. REMICADE [Suspect]
     Indication: CROHN'S DISEASE
     Route: 042
     Dates: start: 20070131

REACTIONS (1)
  - SPLENOMEGALY [None]
